FAERS Safety Report 6930569-4 (Version None)
Quarter: 2010Q3

REPORT INFORMATION
  Report Type: 
  Country: None (occurrence: None)
  Receive Date: 20100818
  Receipt Date: 20100809
  Transmission Date: 20110219
  Serious: Yes (Hospitalization, Other)
  Sender: FDA-Public Use
  Company Number: B0669841A

PATIENT
  Sex: Female

DRUGS (1)
  1. MODACIN [Suspect]
     Indication: ENTEROCOLITIS
     Route: 042

REACTIONS (5)
  - ABDOMINAL PAIN [None]
  - GAIT DISTURBANCE [None]
  - PSEUDOMEMBRANOUS COLITIS [None]
  - PYREXIA [None]
  - SEPTIC SHOCK [None]
